FAERS Safety Report 17453671 (Version 1)
Quarter: 2020Q1

REPORT INFORMATION
  Report Type: Spontaneous
  Country: US (occurrence: US)
  Receive Date: 20200224
  Receipt Date: 20200224
  Transmission Date: 20200409
  Serious: No
  Sender: FDA-Public Use
  Company Number: US-VYERA PHARMACEUTICALS, LLC-2019VYE00053

PATIENT
  Age: 48 Year
  Sex: Female

DRUGS (2)
  1. DARAPRIM [Suspect]
     Active Substance: PYRIMETHAMINE
     Indication: INFECTION PARASITIC
     Dosage: 75 MG, 1X/DAY
     Route: 048
     Dates: start: 20190916
  2. EMVERM [Concomitant]
     Active Substance: MEBENDAZOLE

REACTIONS (4)
  - Thrombosis [Unknown]
  - Rash [Unknown]
  - Off label use [Not Recovered/Not Resolved]
  - Intentional dose omission [Recovered/Resolved]

NARRATIVE: CASE EVENT DATE: 2019
